FAERS Safety Report 6613634-0 (Version None)
Quarter: 2010Q1

REPORT INFORMATION
  Report Type: 
  Country: None (occurrence: None)
  Receive Date: 20100304
  Receipt Date: 20100224
  Transmission Date: 20100710
  Serious: Yes (Other)
  Sender: FDA-Public Use
  Company Number: DE-ROCHE-687481

PATIENT
  Sex: Female
  Weight: 71 kg

DRUGS (2)
  1. BEVACIZUMAB [Suspect]
     Indication: BREAST CANCER
     Dosage: DOSE: 15 MG/KG, FREQUENCY: 1, LAST DOSE PRIOR TO SAE: 13 JANUARY 2010.
     Route: 042
     Dates: start: 20091020, end: 20100115
  2. DOCETAXEL [Suspect]
     Indication: BREAST CANCER
     Dosage: DOSE: 100 MG/M2,  FREQUENCY: 1, LAST DOSE PRIOR TO SAE: 14 JANUARY 2010.
     Route: 042
     Dates: start: 20100114, end: 20100115

REACTIONS (2)
  - MUCOSAL INFLAMMATION [None]
  - STOMATITIS [None]
